FAERS Safety Report 23242783 (Version 1)
Quarter: 2023Q4

REPORT INFORMATION
  Report Type: Spontaneous
  Country: HU (occurrence: HU)
  Receive Date: 20231129
  Receipt Date: 20231129
  Transmission Date: 20240110
  Serious: Yes (Other)
  Sender: FDA-Public Use
  Company Number: HU-BoehringerIngelheim-2023-BI-274639

PATIENT
  Age: 50 Year
  Sex: Male
  Weight: 129 kg

DRUGS (2)
  1. SYNJARDY [Suspect]
     Active Substance: EMPAGLIFLOZIN\METFORMIN HYDROCHLORIDE
     Indication: Type 2 diabetes mellitus
     Dosage: 5/1000 MG, ONE DOSAGE FORM
     Route: 048
     Dates: start: 20211025, end: 20230720
  2. PERINDOPRIL ERBUMINE [Concomitant]
     Active Substance: PERINDOPRIL ERBUMINE
     Indication: Hypertension
     Dates: start: 20211025

REACTIONS (1)
  - Bowenoid papulosis [Recovering/Resolving]

NARRATIVE: CASE EVENT DATE: 20230101
